FAERS Safety Report 8379725-1 (Version None)
Quarter: 2012Q2

REPORT INFORMATION
  Report Type: 
  Country: None (occurrence: None)
  Receive Date: 20120523
  Receipt Date: 20120514
  Transmission Date: 20120825
  Serious: Yes (Hospitalization)
  Sender: FDA-Public Use
  Company Number: JP-VERTEX PHARMACEUTICALS INC.-AE-2012-007327

PATIENT
  Age: 61 Year
  Sex: Male

DRUGS (14)
  1. TELAVIC (TELAPREVIR) [Suspect]
     Route: 048
     Dates: start: 20120411, end: 20120416
  2. TELAVIC (TELAPREVIR) [Suspect]
     Route: 048
     Dates: start: 20120416
  3. PEG-INTRON [Concomitant]
     Route: 051
     Dates: start: 20120330, end: 20120330
  4. REBETOL [Concomitant]
     Indication: HEPATITIS C
     Route: 048
     Dates: start: 20120316, end: 20120404
  5. REBETOL [Concomitant]
     Route: 048
     Dates: start: 20120409, end: 20120501
  6. REBETOL [Concomitant]
     Route: 048
     Dates: start: 20120508
  7. AMLODIPINE BESYLATE [Concomitant]
     Route: 048
     Dates: start: 20120508
  8. PEG-INTRON [Concomitant]
     Route: 051
     Dates: start: 20120501
  9. PEG-INTRON [Concomitant]
     Indication: HEPATITIS C
     Route: 051
     Dates: start: 20120316, end: 20120323
  10. REBETOL [Concomitant]
     Route: 048
     Dates: start: 20120501, end: 20120508
  11. LISINOPRIL [Concomitant]
     Route: 048
     Dates: end: 20120507
  12. TELAVIC (TELAPREVIR) [Suspect]
     Indication: HEPATITIS C
     Route: 048
     Dates: start: 20120316, end: 20120404
  13. PNEUMOVAX 23 [Concomitant]
     Route: 051
  14. PEG-INTRON [Concomitant]
     Route: 051
     Dates: start: 20120409, end: 20120424

REACTIONS (1)
  - ERYTHEMA [None]
